FAERS Safety Report 19231955 (Version 1)
Quarter: 2021Q2

REPORT INFORMATION
  Report Type: Spontaneous
  Country: US (occurrence: US)
  Receive Date: 20210507
  Receipt Date: 20210507
  Transmission Date: 20210717
  Serious: No
  Sender: FDA-Public Use
  Company Number: US-NEURELIS, INC.-2021NEU000033

PATIENT
  Age: 22 Year
  Sex: Male

DRUGS (1)
  1. VALTOCO [Suspect]
     Active Substance: DIAZEPAM
     Indication: SEIZURE
     Dosage: 15 MG,1 SPRAY IN EACH NOSTRIL
     Route: 045

REACTIONS (2)
  - Underdose [Unknown]
  - Drug ineffective [Unknown]
